FAERS Safety Report 12558475 (Version 1)
Quarter: 2016Q3

REPORT INFORMATION
  Report Type: Spontaneous
  Country: DE (occurrence: DE)
  Receive Date: 20160714
  Receipt Date: 20160714
  Transmission Date: 20161109
  Serious: Yes (Other)
  Sender: FDA-Public Use
  Company Number: DE-009507513-1606DEU002051

PATIENT
  Age: 77 Year
  Sex: Male
  Weight: 100 kg

DRUGS (12)
  1. MARCUMAR [Concomitant]
     Active Substance: PHENPROCOUMON
  2. METFORMIN [Concomitant]
     Active Substance: METFORMIN HYDROCHLORIDE
     Dosage: 1000 MG, BID
  3. FINASTERIDE. [Suspect]
     Active Substance: FINASTERIDE
     Dosage: 5 MG, QD
     Route: 048
     Dates: start: 20151228, end: 20160503
  4. AZARGA [Concomitant]
     Active Substance: BRINZOLAMIDE\TIMOLOL MALEATE
     Dosage: 5 DROPS IN THE EVENING
  5. SORTIS [Suspect]
     Active Substance: ATORVASTATIN
     Dosage: 80 MG, ONCE DAILY
     Dates: end: 20160505
  6. TAMSULOSIN HYDROCHLORIDE. [Concomitant]
     Active Substance: TAMSULOSIN HYDROCHLORIDE
     Dosage: STADA, 0.4 MG, ONCE DAILY
     Route: 048
  7. L-THYROXIN [Concomitant]
     Active Substance: LEVOTHYROXINE SODIUM
     Dosage: 1 DF, QD (STRENGHT WAS REPORTED AS 125 (UNITS NOT REPORTED), 125 MCG, ONCE DAILY
  8. PROSTAGUTT FORTE [Concomitant]
     Active Substance: HERBALS
     Dosage: 1 DF, TWICE DAILY
  9. BISOPROLOL [Concomitant]
     Active Substance: BISOPROLOL
     Dosage: 5 MG, ONCE DAILY
  10. LORAZEPAM. [Concomitant]
     Active Substance: LORAZEPAM
     Dosage: 1 MG, 1/2 DAILY
     Dates: end: 20160505
  11. SEVIKAR [Concomitant]
     Active Substance: AMLODIPINE BESYLATE\OLMESARTAN MEDOXOMIL
     Dosage: SERVICAR/HCT/40/5/25 MG, ONCE DAILY
  12. TEGRETOL XR [Concomitant]
     Active Substance: CARBAMAZEPINE
     Dosage: 200 MG RETARD BERAGENA, TWICE DAILY

REACTIONS (4)
  - Depression [Not Recovered/Not Resolved]
  - Pneumonia [Unknown]
  - Sleep disorder [Unknown]
  - Phimosis [Unknown]

NARRATIVE: CASE EVENT DATE: 201603
